FAERS Safety Report 8823763 (Version 3)
Quarter: 2012Q4

REPORT INFORMATION
  Report Type: 
  Country: US (occurrence: US)
  Receive Date: 20121003
  Receipt Date: 20121207
  Transmission Date: 20130627
  Serious: No
  Sender: FDA-Public Use
  Company Number: US-009507513-1210USA000317

PATIENT
  Age: 30 None
  Sex: Female
  Weight: 82.86 kg

DRUGS (2)
  1. IMPLANON [Suspect]
     Indication: CONTRACEPTION
     Dosage: 1 DF, UNK
     Route: 059
     Dates: start: 20120207, end: 20121016
  2. IMPLANON [Suspect]
     Dosage: 1 UNK, UNK
     Dates: start: 20121016

REACTIONS (4)
  - Device breakage [Unknown]
  - Complication of device insertion [Unknown]
  - Device damage [Unknown]
  - No adverse event [Unknown]
